FAERS Safety Report 24228849 (Version 1)
Quarter: 2024Q3

REPORT INFORMATION
  Report Type: Spontaneous
  Country: BE (occurrence: BE)
  Receive Date: 20240820
  Receipt Date: 20240820
  Transmission Date: 20241016
  Serious: Yes (Other)
  Sender: MYLAN
  Company Number: None

PATIENT
  Age: 25 Year
  Sex: Male

DRUGS (14)
  1. METHOTREXATE [Suspect]
     Active Substance: METHOTREXATE
     Indication: Product used for unknown indication
     Dosage: 15 MILLIGRAM
     Route: 065
     Dates: start: 2011
  2. METHOTREXATE [Suspect]
     Active Substance: METHOTREXATE
     Indication: Product used for unknown indication
     Dosage: 10 MILLIGRAM,QW,(WEEKLY)
     Route: 065
     Dates: start: 2006
  3. PREDNISOLONE [Suspect]
     Active Substance: PREDNISOLONE
     Indication: Product used for unknown indication
     Dosage: 10 MILLIGRAM, QD,(10 MG/DAY)
     Route: 065
     Dates: start: 2007
  4. PREDNISOLONE [Suspect]
     Active Substance: PREDNISOLONE
     Dosage: 10 MILLIGRAM, QD,(10 MG/DAY)
     Route: 065
     Dates: start: 2011
  5. PREDNISOLONE [Suspect]
     Active Substance: PREDNISOLONE
     Dosage: 20 MILLIGRAM,QD,(20 MG/DAY)
     Route: 065
     Dates: start: 2011
  6. PREDNISOLONE [Suspect]
     Active Substance: PREDNISOLONE
     Dosage: 20 MILLIGRAM, QD,(20 MG/DAY)
     Route: 065
     Dates: start: 201105
  7. CYCLOSPORINE [Suspect]
     Active Substance: CYCLOSPORINE
     Indication: Product used for unknown indication
     Dosage: 200 MILLIGRAM,QD,(2X100 MG/DAY)
     Route: 065
     Dates: start: 2007
  8. INFLIXIMAB [Suspect]
     Active Substance: INFLIXIMAB
     Indication: Product used for unknown indication
     Dosage: UNK,QW,(DOSE FREQUENCY INCREASED TO FOUR TIMES WEEKLY)
     Route: 065
     Dates: start: 2011
  9. INFLIXIMAB [Suspect]
     Active Substance: INFLIXIMAB
     Dosage: 40 MILLIGRAM/KILOGRAM, QW,(5 MG/KG EIGHT TIMES WEEKLY)
     Route: 065
     Dates: start: 201105
  10. METHYLPREDNISOLONE [Suspect]
     Active Substance: METHYLPREDNISOLONE
     Indication: Product used for unknown indication
     Dosage: 16 MILLIGRAM, QD,(16 MG DAILY)
     Route: 065
     Dates: start: 2006
  11. CYCLOPHOSPHAMIDE [Suspect]
     Active Substance: CYCLOPHOSPHAMIDE
     Indication: Product used for unknown indication
     Dosage: 500 MILLIGRAM, Q3W,(EVERY 3 WEEKS)
     Route: 042
     Dates: start: 2011
  12. PIROXICAM [Concomitant]
     Active Substance: PIROXICAM
     Dosage: 20 MILLIGRAM,QD,(DAILY)
     Route: 065
     Dates: start: 2003
  13. SULFASALAZINE [Concomitant]
     Active Substance: SULFASALAZINE
     Dosage: 3 GRAM,QD,(DAILY)
     Route: 065
     Dates: start: 2003
  14. ETANERCEPT [Concomitant]
     Active Substance: ETANERCEPT
     Indication: Product used for unknown indication
     Dosage: 50 MILLIGRAM, QW,(ONCE A WEEK)
     Route: 058
     Dates: start: 200305

REACTIONS (2)
  - Polychondritis [Recovered/Resolved]
  - Drug ineffective [Unknown]
